FAERS Safety Report 8577811-4 (Version None)
Quarter: 2012Q3

REPORT INFORMATION
  Report Type: 
  Country: None (occurrence: None)
  Receive Date: 20120808
  Receipt Date: 20120731
  Transmission Date: 20120928
  Serious: No
  Sender: FDA-Public Use
  Company Number: US-BIOGENIDEC-2012BI026396

PATIENT
  Age: 49 Year
  Sex: Male

DRUGS (1)
  1. TYSABRI [Suspect]
     Indication: MULTIPLE SCLEROSIS
     Route: 042
     Dates: start: 20120703

REACTIONS (7)
  - HEART RATE INCREASED [None]
  - HYPERTENSION [None]
  - FATIGUE [None]
  - PALPITATIONS [None]
  - HEADACHE [None]
  - PAIN IN EXTREMITY [None]
  - STRESS [None]
